FAERS Safety Report 9952447 (Version 1)
Quarter: 2014Q1

REPORT INFORMATION
  Report Type: Report from Study
  Country: US (occurrence: US)
  Receive Date: 20140304
  Receipt Date: 20140304
  Transmission Date: 20141002
  Serious: No
  Sender: FDA-Public Use
  Company Number: US-ABBVIE-13P-163-1071330-00

PATIENT
  Sex: Female
  Weight: 86.71 kg

DRUGS (7)
  1. HUMIRA [Suspect]
     Indication: RHEUMATOID ARTHRITIS
     Dates: end: 201302
  2. ALEVE [Concomitant]
     Indication: RHEUMATOID ARTHRITIS
  3. METHOTREXATE [Concomitant]
     Indication: RHEUMATOID ARTHRITIS
  4. FOLIC ACID [Concomitant]
     Indication: RHEUMATOID ARTHRITIS
  5. TRAMADOL [Concomitant]
     Indication: RHEUMATOID ARTHRITIS
  6. TYLENOL WITH CODEINE [Concomitant]
     Indication: RHEUMATOID ARTHRITIS
  7. MVI [Concomitant]
     Indication: VITAMIN SUPPLEMENTATION

REACTIONS (1)
  - Drug ineffective [Not Recovered/Not Resolved]
